FAERS Safety Report 12907958 (Version 1)
Quarter: 2016Q4

REPORT INFORMATION
  Report Type: Spontaneous
  Country: US (occurrence: US)
  Receive Date: 20161103
  Receipt Date: 20161103
  Transmission Date: 20170207
  Serious: Yes (Life-Threatening, Other)
  Sender: FDA-Public Use
  Company Number: US-MYLANLABS-2016M1046597

PATIENT

DRUGS (1)
  1. AZATHIOPRINE. [Suspect]
     Active Substance: AZATHIOPRINE
     Indication: AUTOIMMUNE NEUROPATHY
     Dosage: INITIAL DOSE NOT STATED, LATER THE DOSE WAS INCREASED TO 250MG/DAY IN A DIVIDED DOSES
     Route: 065

REACTIONS (2)
  - Product use issue [Recovering/Resolving]
  - Angiocentric lymphoma [Recovering/Resolving]
